FAERS Safety Report 10072287 (Version 1)
Quarter: 2014Q2

REPORT INFORMATION
  Report Type: Spontaneous
  Country: BR (occurrence: BR)
  Receive Date: 20140411
  Receipt Date: 20140411
  Transmission Date: 20141212
  Serious: Yes (Other)
  Sender: FDA-Public Use
  Company Number: BR-ASTRAZENECA-2014SE24755

PATIENT
  Age: 62 Year
  Sex: Female

DRUGS (6)
  1. SELOZOK [Suspect]
     Indication: HYPERTENSION
     Dosage: TWO TIMES A DAY
     Route: 048
     Dates: start: 201211
  2. CRESTOR [Suspect]
     Indication: BLOOD CHOLESTEROL INCREASED
     Dosage: DAILY
     Route: 048
     Dates: start: 201211
  3. BRILINTA [Suspect]
     Indication: MYOCARDIAL INFARCTION
     Dosage: TWO TIMES A DAY
     Route: 048
     Dates: start: 201211
  4. HYDROCHLOROTHIAZIDE (NON AZ PRODUCT) [Suspect]
     Indication: MYOCARDIAL INFARCTION
     Dosage: DAILY
     Route: 048
     Dates: start: 201211
  5. ASA [Concomitant]
     Indication: MYOCARDIAL INFARCTION
     Dosage: DAILY
     Route: 048
     Dates: start: 201211
  6. VASTAREL [Concomitant]
     Indication: MYOCARDIAL INFARCTION
     Dosage: TWO TIMES A DAY
     Route: 048
     Dates: start: 201211

REACTIONS (3)
  - Anaemia [Unknown]
  - Hyperglycaemia [Recovering/Resolving]
  - Off label use [Not Recovered/Not Resolved]
